FAERS Safety Report 16157363 (Version 1)
Quarter: 2019Q2

REPORT INFORMATION
  Report Type: Spontaneous
  Country: US (occurrence: US)
  Receive Date: 20190228
  Receipt Date: 20190228
  Transmission Date: 20190711
  Serious: No
  Sender: FDA-Public Use
  Company Number: None

PATIENT
  Sex: Female

DRUGS (2)
  1. GAMMAGARD LIQUID [Suspect]
     Active Substance: HUMAN IMMUNOGLOBULIN G
     Indication: HYPOGAMMAGLOBULINAEMIA
     Dosage: ?          OTHER STRENGTH:5/50 GM/ML;?
     Route: 042
     Dates: start: 20180213
  2. GAMMAGARD [Suspect]
     Active Substance: HUMAN IMMUNOGLOBULIN G
     Indication: HYPOGAMMAGLOBULINAEMIA
     Dosage: ?          OTHER STRENGTH:30/300 GM/M;?
     Route: 042
     Dates: start: 20180523

REACTIONS (7)
  - Myalgia [None]
  - Peripheral swelling [None]
  - Infusion related reaction [None]
  - Contusion [None]
  - Hypoaesthesia [None]
  - Dysstasia [None]
  - Fall [None]
